FAERS Safety Report 8515993-0 (Version None)
Quarter: 2012Q3

REPORT INFORMATION
  Report Type: 
  Country: None (occurrence: None)
  Receive Date: 20120717
  Receipt Date: 20120713
  Transmission Date: 20120928
  Serious: Yes (Death, Other)
  Sender: FDA-Public Use
  Company Number: VE-PFIZER INC-2011222790

PATIENT
  Age: 78 Year
  Sex: Male

DRUGS (5)
  1. ZOLOFT [Concomitant]
     Dosage: 50 MG, 1X/DAY
     Route: 048
  2. AMIODARONE HCL [Concomitant]
     Dosage: 200 MG, 1X/DAY
     Route: 048
  3. LIPITOR [Suspect]
     Indication: HYPERCHOLESTEROLAEMIA
     Dosage: 40 MG, 1X/DAY
     Route: 048
     Dates: start: 20110101, end: 20111001
  4. OMEPRAZOLE [Concomitant]
     Dosage: 40 MG, 1X/DAY
     Route: 048
  5. CARVEDILOL [Concomitant]
     Dosage: 6.25 MG, 1X/DAY
     Route: 048

REACTIONS (2)
  - CARDIAC PACEMAKER INSERTION [None]
  - RESPIRATORY ARREST [None]
